FAERS Safety Report 17113012 (Version 2)
Quarter: 2019Q4

REPORT INFORMATION
  Report Type: Spontaneous
  Country: BR (occurrence: BR)
  Receive Date: 20191204
  Receipt Date: 20191217
  Transmission Date: 20200122
  Serious: Yes (Other)
  Sender: FDA-Public Use
  Company Number: BR-SA-2019SA327799

PATIENT
  Age: 38 Year
  Sex: Female
  Weight: 80 kg

DRUGS (1)
  1. CEPACOL [Suspect]
     Active Substance: BENZOCAINE
     Indication: DENTAL DISORDER PROPHYLAXIS
     Dosage: UNK (250 ML IN THE MORNING AFTER LUNCH/AT NIGHT )
     Route: 048
     Dates: start: 20181101

REACTIONS (6)
  - Gingival erythema [Not Recovered/Not Resolved]
  - Tongue ulceration [Not Recovered/Not Resolved]
  - Burn oral cavity [Not Recovered/Not Resolved]
  - Feeding disorder [Not Recovered/Not Resolved]
  - Tongue erythema [Not Recovered/Not Resolved]
  - Gingival discomfort [Not Recovered/Not Resolved]

NARRATIVE: CASE EVENT DATE: 20191119
